FAERS Safety Report 16066994 (Version 1)
Quarter: 2019Q1

REPORT INFORMATION
  Report Type: Report from Study
  Country: IE (occurrence: IE)
  Receive Date: 20190313
  Receipt Date: 20190313
  Transmission Date: 20190418
  Serious: Yes (Hospitalization)
  Sender: FDA-Public Use
  Company Number: IE-MYLANLABS-2019M1022966

PATIENT
  Age: 55 Year
  Sex: Female

DRUGS (4)
  1. AZATHIOPRINE. [Suspect]
     Active Substance: AZATHIOPRINE
     Dosage: 100 MILLIGRAM, Q2D
     Route: 048
     Dates: start: 20150326, end: 20150327
  2. HUMIRA [Suspect]
     Active Substance: ADALIMUMAB
     Indication: COLITIS ULCERATIVE
     Dosage: 40 MILLIGRAM
     Route: 058
     Dates: start: 20130515, end: 20140826
  3. SALAZOPRIN [Concomitant]
     Indication: COLITIS ULCERATIVE
     Dosage: 4 GRAM, QD
     Route: 054
     Dates: start: 20130411
  4. AZATHIOPRINE. [Suspect]
     Active Substance: AZATHIOPRINE
     Indication: COLITIS ULCERATIVE
     Dosage: DATE OF FIRST DOSE EVER (PRIOR TO REGISTRY)
     Route: 048
     Dates: start: 20001208, end: 20111218

REACTIONS (1)
  - Acute leukaemia [Not Recovered/Not Resolved]

NARRATIVE: CASE EVENT DATE: 20180608
